FAERS Safety Report 9822706 (Version 1)
Quarter: 2014Q1

REPORT INFORMATION
  Report Type: Spontaneous
  Country: US (occurrence: US)
  Receive Date: 20140116
  Receipt Date: 20140116
  Transmission Date: 20141002
  Serious: Yes (Hospitalization)
  Sender: FDA-Public Use
  Company Number: US-JNJFOC-20140104657

PATIENT
  Sex: Male

DRUGS (2)
  1. IMODIUM A-D CREAMY MINT [Suspect]
     Route: 048
  2. IMODIUM A-D CREAMY MINT [Suspect]
     Indication: DIARRHOEA
     Dosage: 1-1.5 TSP, TWICE
     Route: 048

REACTIONS (1)
  - Intestinal obstruction [Unknown]
